FAERS Safety Report 19111161 (Version 1)
Quarter: 2021Q2

REPORT INFORMATION
  Report Type: Spontaneous
  Country: US (occurrence: US)
  Receive Date: 20210408
  Receipt Date: 20210408
  Transmission Date: 20210717
  Serious: Yes (Life-Threatening, Hospitalization)
  Sender: FDA-Public Use
  Company Number: None

PATIENT
  Age: 66 Year
  Sex: Male

DRUGS (1)
  1. YESCARTA [Suspect]
     Active Substance: AXICABTAGENE CILOLEUCEL
     Indication: B-CELL LYMPHOMA
     Dates: start: 20210216, end: 20210216

REACTIONS (13)
  - Hypotension [None]
  - Aphasia [None]
  - Vomiting [None]
  - Somnolence [None]
  - Pyrexia [None]
  - Tremor [None]
  - Malaise [None]
  - Agitation [None]
  - Hypoxia [None]
  - Encephalopathy [None]
  - Nausea [None]
  - Inflammatory marker increased [None]
  - Neurotoxicity [None]

NARRATIVE: CASE EVENT DATE: 20210219
